FAERS Safety Report 25969594 (Version 1)
Quarter: 2025Q4

REPORT INFORMATION
  Report Type: Spontaneous
  Country: US (occurrence: US)
  Receive Date: 20251028
  Receipt Date: 20251028
  Transmission Date: 20260118
  Serious: Yes (Hospitalization)
  Sender: RECKITT BENCKISER
  Company Number: US-INDIVIOR US-INDV-176582-2025

PATIENT
  Age: 58 Year
  Sex: Male

DRUGS (9)
  1. SUBLOCADE [Suspect]
     Active Substance: BUPRENORPHINE
     Indication: Drug use disorder
     Dosage: 300 MILLIGRAM, QMO (FIRST INJECTION)
     Route: 058
     Dates: start: 20241211
  2. SUBLOCADE [Suspect]
     Active Substance: BUPRENORPHINE
     Dosage: 300 MILLIGRAM, QMO (SECOND INJECTION)
     Route: 058
     Dates: start: 2025
  3. BREZTRI AEROSPHERE [BUDESONIDE;FORMOTEROL FUMARATE DIHYDRATE;GLYCOPYRR [Concomitant]
     Indication: Chronic obstructive pulmonary disease
     Dosage: 160/9/4.8 MICROGRAMS AEROSPHERE
  4. ALBUTEROL [Concomitant]
     Active Substance: ALBUTEROL
     Indication: Chronic obstructive pulmonary disease
     Dosage: 90 MICROGRAMS, EVERY 4-6 HOURS
  5. PREGABALIN [Concomitant]
     Active Substance: PREGABALIN
     Indication: Back pain
     Dosage: 200 MILLIGRAMS CAPSULE, UNKNOWN
     Route: 065
  6. DULOXETINE [Concomitant]
     Active Substance: DULOXETINE
     Indication: Back pain
     Dosage: 30 MILLIGRAM, TID
     Route: 065
  7. QUETIAPINE [Concomitant]
     Active Substance: QUETIAPINE
     Indication: Borderline personality disorder
     Dosage: 100 MILLIGRAM, Q8H
     Route: 065
  8. MIRTAZAPINE [Concomitant]
     Active Substance: MIRTAZAPINE
     Indication: Borderline personality disorder
     Dosage: 30 MILLIGRAM, QD
     Route: 065
  9. CLONAZEPAM [Concomitant]
     Active Substance: CLONAZEPAM
     Indication: Anxiety
     Dosage: 1 MILLIGRAM, BID
     Route: 065

REACTIONS (2)
  - Chest pain [Unknown]
  - Injection site cellulitis [Recovered/Resolved]

NARRATIVE: CASE EVENT DATE: 20241201
